FAERS Safety Report 6424747-0 (Version None)
Quarter: 2009Q4

REPORT INFORMATION
  Report Type: 
  Country: None (occurrence: None)
  Receive Date: 20091029
  Receipt Date: 20091026
  Transmission Date: 20100525
  Serious: Yes (Hospitalization)
  Sender: FDA-Public Use
  Company Number: SP02360

PATIENT
  Age: 77 Year
  Sex: Female

DRUGS (2)
  1. VISICOL [Suspect]
     Indication: COLONOSCOPY
     Dosage: ORAL
     Route: 048
     Dates: start: 20060401, end: 20060401
  2. VISICOL [Suspect]
     Indication: PREOPERATIVE CARE
     Dosage: ORAL
     Route: 048
     Dates: start: 20060401, end: 20060401

REACTIONS (3)
  - FEELING ABNORMAL [None]
  - NEPHROGENIC ANAEMIA [None]
  - RENAL FAILURE ACUTE [None]
